FAERS Safety Report 9252138 (Version 1)
Quarter: 2013Q2

REPORT INFORMATION
  Report Type: Spontaneous
  Country: DE (occurrence: DE)
  Receive Date: 20130424
  Receipt Date: 20130424
  Transmission Date: 20140414
  Serious: Yes (Other)
  Sender: FDA-Public Use
  Company Number: PHHY2013DE036832

PATIENT
  Age: 17 Year
  Sex: Male

DRUGS (4)
  1. METFORMIN [Suspect]
     Indication: WEIGHT INCREASED
     Dosage: 850 MG, BID
  2. METFORMIN [Suspect]
     Indication: DECREASED ACTIVITY
  3. METHYLPHENIDATE HYDROCHLORIDE [Suspect]
     Indication: WEIGHT INCREASED
     Dosage: 10 MG, QD
  4. METHYLPHENIDATE HYDROCHLORIDE [Suspect]
     Indication: DECREASED ACTIVITY

REACTIONS (3)
  - Grand mal convulsion [Unknown]
  - Gastrointestinal disorder [Unknown]
  - Drug intolerance [Unknown]
